FAERS Safety Report 18632490 (Version 3)
Quarter: 2022Q4

REPORT INFORMATION
  Report Type: Report from Study
  Country: JP (occurrence: JP)
  Receive Date: 20201218
  Receipt Date: 20221021
  Transmission Date: 20230112
  Serious: Yes (Hospitalization, Disabling, Other)
  Sender: FDA-Public Use
  Company Number: JP-RECORDATI RARE DISEASES INC.-JP-R13005-19-00241

PATIENT
  Age: 0 Year
  Sex: Male
  Weight: 1.078 kg

DRUGS (13)
  1. NEOPROFEN [Suspect]
     Active Substance: IBUPROFEN LYSINE
     Indication: Patent ductus arteriosus
     Dosage: 10 MILLIGRAM/KILOGRAM, QD
     Route: 042
     Dates: start: 20190608, end: 20190608
  2. NEOPROFEN [Suspect]
     Active Substance: IBUPROFEN LYSINE
     Dosage: 5 MILLIGRAM/KILOGRAM
     Route: 042
     Dates: start: 20190609, end: 20190609
  3. DEXTROSE [Concomitant]
     Active Substance: DEXTROSE
     Indication: Nutritional supplementation
     Dosage: UNK
     Route: 042
     Dates: start: 20190607, end: 20190609
  4. PLEAMIN P [Concomitant]
     Indication: Nutritional supplementation
     Dosage: UNK
     Route: 042
     Dates: start: 20190608, end: 20190612
  5. VITAMINS [Concomitant]
     Active Substance: VITAMINS
     Indication: Vitamin supplementation
     Dosage: UNK
     Route: 042
     Dates: start: 20190608, end: 20190612
  6. FENTANYL [Concomitant]
     Active Substance: FENTANYL
     Indication: Sedation
     Dosage: UNK
     Route: 042
     Dates: start: 20190607, end: 20190611
  7. KAYTWON [Concomitant]
     Indication: Vitamin supplementation
     Dosage: UNK
     Route: 042
     Dates: start: 20190607, end: 20190609
  8. CALCIUM GLUCONATE [Concomitant]
     Active Substance: CALCIUM GLUCONATE
     Indication: Hypocalcaemia
     Dosage: UNK
     Route: 042
     Dates: start: 20190607, end: 20190612
  9. LASIX [Concomitant]
     Active Substance: FUROSEMIDE
     Indication: Blood pressure management
     Dosage: UNK
     Route: 042
     Dates: start: 20190608, end: 20190611
  10. LASIX [Concomitant]
     Active Substance: FUROSEMIDE
     Indication: Polyuria
  11. ISOTONIC SODIUM CHLORIDE SOLUTION [Concomitant]
     Active Substance: SODIUM CHLORIDE
     Indication: Product used for unknown indication
     Dosage: UNK
     Route: 013
     Dates: start: 20190607, end: 20190612
  12. MEYLON [Concomitant]
     Active Substance: SODIUM BICARBONATE
     Indication: Metabolic acidosis
     Dosage: UNK
     Route: 042
     Dates: start: 20190609, end: 20190609
  13. PHENOBARBITAL SODIUM [Concomitant]
     Active Substance: PHENOBARBITAL SODIUM
     Indication: Intraventricular haemorrhage
     Dosage: UNK
     Route: 042
     Dates: start: 20190609, end: 20190609

REACTIONS (8)
  - Posthaemorrhagic hydrocephalus [Unknown]
  - Platelet count decreased [Unknown]
  - White blood cell count decreased [Recovering/Resolving]
  - Bacteraemia [Recovered/Resolved]
  - Intraventricular haemorrhage [Unknown]
  - Blood creatinine increased [Recovered/Resolved]
  - Respiratory failure [Unknown]
  - Hypoglycaemia [Recovered/Resolved]

NARRATIVE: CASE EVENT DATE: 20190609
